FAERS Safety Report 6720116-4 (Version None)
Quarter: 2010Q2

REPORT INFORMATION
  Report Type: 
  Country: None (occurrence: None)
  Receive Date: 20100511
  Receipt Date: 20100504
  Transmission Date: 20101027
  Serious: Yes (Hospitalization, Other)
  Sender: FDA-Public Use
  Company Number: BR-SANOFI-AVENTIS-200913100GDDC

PATIENT
  Age: 75 Year
  Sex: Female
  Weight: 68 kg

DRUGS (12)
  1. LANTUS [Suspect]
     Route: 058
     Dates: start: 20060101
  2. OPTIPEN [Suspect]
     Dates: start: 20060101
  3. PURAN T4 [Concomitant]
     Route: 048
  4. OMEPRAZOLE [Concomitant]
     Indication: GASTRIC DISORDER
     Route: 048
  5. RAMIPRIL [Concomitant]
     Route: 048
  6. AMARYL [Concomitant]
     Route: 048
  7. METFORMIN HYDROCHLORIDE [Concomitant]
     Dosage: DOSE UNIT: 850 MG
     Route: 048
  8. ASPIRIN [Concomitant]
     Route: 048
  9. ATORVASTATIN CALCIUM [Concomitant]
     Route: 048
  10. LORAX /BRA/ [Concomitant]
     Route: 048
  11. MICARDIS [Concomitant]
     Indication: BLOOD PRESSURE
  12. CALCIUM PHOSPHATE/CALCIUM SODIUM LACTATE/ERGOCALCIFEROL [Concomitant]
     Dosage: DOSE AS USED: 1 TABLET EVERY 8 DAYS
     Route: 048

REACTIONS (3)
  - BLOOD GLUCOSE ABNORMAL [None]
  - BLOOD GLUCOSE INCREASED [None]
  - FALL [None]
